FAERS Safety Report 6719060-8 (Version None)
Quarter: 2010Q2

REPORT INFORMATION
  Report Type: 
  Country: None (occurrence: None)
  Receive Date: 20100510
  Receipt Date: 20100510
  Transmission Date: 20101027
  Serious: Yes (Other)
  Sender: FDA-Public Use
  Company Number: None

PATIENT
  Age: 61 Year
  Sex: Female
  Weight: 68.9467 kg

DRUGS (2)
  1. CIPROFLOXACIN [Suspect]
     Indication: CONJUNCTIVITIS
     Dosage: 2 DROPS EVERY 2 HRS BOTH EYES
     Route: 047
     Dates: start: 20100415
  2. CIPROFLOXACIN [Suspect]
     Indication: CONJUNCTIVITIS
     Dosage: 2 DROPS EVERY 2 HRS BOTH EYES
     Route: 047
     Dates: start: 20100416

REACTIONS (2)
  - MUSCULOSKELETAL PAIN [None]
  - PAIN IN EXTREMITY [None]
